FAERS Safety Report 8612030-4 (Version None)
Quarter: 2012Q3

REPORT INFORMATION
  Report Type: 
  Country: None (occurrence: None)
  Receive Date: 20120822
  Receipt Date: 20120727
  Transmission Date: 20120928
  Serious: Yes (Life-Threatening, Hospitalization, Other)
  Sender: FDA-Public Use
  Company Number: GB-GLAXOSMITHKLINE-B0820603A

PATIENT
  Sex: Female
  Weight: 72.6 kg

DRUGS (14)
  1. OFATUMUMAB [Suspect]
     Indication: CHRONIC LYMPHOCYTIC LEUKAEMIA
     Route: 042
     Dates: start: 20120704
  2. LORATADINE [Concomitant]
     Indication: RASH
     Dosage: 10MG PER DAY
     Route: 048
     Dates: start: 20120627
  3. BENDAMUSTINE HYDROCHLORIDE [Suspect]
     Indication: CHRONIC LYMPHOCYTIC LEUKAEMIA
     Route: 042
     Dates: start: 20120704
  4. FLUCONAZOLE [Concomitant]
     Indication: ANTIFUNGAL TREATMENT
     Route: 048
     Dates: start: 20120530, end: 20120627
  5. OMEPRAZOLE [Concomitant]
     Dosage: 20MG PER DAY
     Route: 048
  6. METOCLOPRAMIDE [Concomitant]
  7. ACETAMINOPHEN [Concomitant]
  8. NEUPOGEN [Concomitant]
  9. PREDNISOLONE [Concomitant]
     Indication: RASH
     Dosage: 25MG PER DAY
     Route: 048
     Dates: start: 20120627, end: 20120704
  10. ALLOPURINOL [Concomitant]
  11. AMILORIDE HYDROCHLORIDE [Concomitant]
     Indication: FLUID RETENTION
     Dosage: 10MG PER DAY
     Route: 048
     Dates: start: 20120627
  12. FUROSEMIDE [Concomitant]
     Indication: FLUID RETENTION
     Dosage: 80MG PER DAY
     Route: 048
     Dates: start: 20120530
  13. CHLORPHENIRAMINE MALEATE [Concomitant]
  14. ACYCLOVIR [Concomitant]

REACTIONS (1)
  - PSORIASIS [None]
